FAERS Safety Report 8107229-X (Version None)
Quarter: 2012Q1

REPORT INFORMATION
  Report Type: 
  Country: None (occurrence: None)
  Receive Date: 20120202
  Receipt Date: 20120120
  Transmission Date: 20120608
  Serious: Yes (Hospitalization, Other)
  Sender: FDA-Public Use
  Company Number: FR-ELI_LILLY_AND_COMPANY-FR201110005286

PATIENT
  Sex: Female
  Weight: 47 kg

DRUGS (7)
  1. FOLIC ACID [Concomitant]
     Indication: RHEUMATOID ARTHRITIS
     Dosage: 15 G, WEEKLY (1/W)
     Route: 048
     Dates: start: 20050101
  2. PREDNISONE TAB [Concomitant]
     Indication: RHEUMATOID ARTHRITIS
     Dosage: 3 MG, QD
     Dates: start: 20010101
  3. VITAMIN D [Concomitant]
     Indication: OSTEOPOROSIS
     Dosage: 1 DF, 2/M
     Route: 048
     Dates: start: 20080101
  4. FORTEO [Suspect]
     Dosage: 20 UG, QD
     Route: 058
     Dates: start: 20111203
  5. METHOTREXATE SODIUM [Concomitant]
     Indication: RHEUMATOID ARTHRITIS
     Dosage: 15 G, WEEKLY (1/W)
     Route: 058
     Dates: start: 20110401
  6. ACTONEL [Concomitant]
     Indication: OSTEOPOROSIS
     Dosage: UNK
  7. FORTEO [Suspect]
     Indication: OSTEOPOROSIS
     Dosage: 20 UG, QD
     Route: 058
     Dates: start: 20110901, end: 20111017

REACTIONS (2)
  - FEMORAL NECK FRACTURE [None]
  - FALL [None]
